FAERS Safety Report 21770842 (Version 1)
Quarter: 2022Q4

REPORT INFORMATION
  Report Type: Spontaneous
  Country: US (occurrence: None)
  Receive Date: 20221222
  Receipt Date: 20221222
  Transmission Date: 20230112
  Serious: Yes (Death)
  Sender: FDA-Public Use
  Company Number: None

PATIENT
  Age: 71 Year
  Sex: Male

DRUGS (9)
  1. CYCLOPHOSPHAMIDE [Suspect]
     Active Substance: CYCLOPHOSPHAMIDE
     Indication: Amyloidosis
     Dosage: 700 MG WEEKLY ORAL??
     Route: 048
     Dates: start: 20221028, end: 20221128
  2. VELCADE [Concomitant]
     Active Substance: BORTEZOMIB
  3. ATORVASTATIN [Concomitant]
     Active Substance: ATORVASTATIN
  4. FERROUS SULFATE [Concomitant]
     Active Substance: FERROUS SULFATE
  5. FURPSEMIDE [Concomitant]
  6. GLIMEPIRIDE [Concomitant]
  7. MIDODRINE [Concomitant]
     Active Substance: MIDODRINE
  8. SPIRONOLACTONE [Concomitant]
     Active Substance: SPIRONOLACTONE
  9. TYLENOL [Concomitant]
     Active Substance: ACETAMINOPHEN

REACTIONS (1)
  - Death [None]

NARRATIVE: CASE EVENT DATE: 20221128
